FAERS Safety Report 26061178 (Version 2)
Quarter: 2025Q4

REPORT INFORMATION
  Report Type: Spontaneous
  Country: GB (occurrence: GB)
  Receive Date: 20251118
  Receipt Date: 20251124
  Transmission Date: 20260118
  Serious: Yes (Hospitalization, Other)
  Sender: NOVARTIS
  Company Number: GB-AMGEN-GBRSP2024192455

PATIENT
  Age: 54 Year
  Sex: Female
  Weight: 71 kg

DRUGS (108)
  1. SECUKINUMAB [Suspect]
     Active Substance: SECUKINUMAB
     Indication: Product used for unknown indication
     Dosage: 98 MG, (DOSAGE1: UNIT=NOT AVAILABLE) / DOSAGE1: UNIT=NOT AVAILABLE DOSAGE2: UNIT=NOT AVAILABLE DOSAG
     Route: 058
  2. SECUKINUMAB [Suspect]
     Active Substance: SECUKINUMAB
     Dosage: 98 MG,  (DOSAGE2: UNIT=NOT AVAILABLE)
     Route: 058
  3. SECUKINUMAB [Suspect]
     Active Substance: SECUKINUMAB
     Dosage: UNK, (ADDITIONAL INFORMATION ON DRUG (FREE TEXT): ADDITIONAL INFO: ROUTE:UNKNOWN; UNK)
     Route: 065
  4. SECUKINUMAB [Suspect]
     Active Substance: SECUKINUMAB
     Dosage: UNK
     Route: 058
  5. SECUKINUMAB [Suspect]
     Active Substance: SECUKINUMAB
     Dosage: UNK
     Route: 058
  6. SECUKINUMAB [Suspect]
     Active Substance: SECUKINUMAB
     Dosage: UNK
     Route: 058
  7. SECUKINUMAB [Suspect]
     Active Substance: SECUKINUMAB
     Dosage: UNK
     Route: 058
  8. SECUKINUMAB [Suspect]
     Active Substance: SECUKINUMAB
     Dosage: UNK
     Route: 058
  9. SECUKINUMAB [Suspect]
     Active Substance: SECUKINUMAB
     Dosage: 98 MG, (DOSAGE TEXT: 98 MILLIGRAM)
     Route: 058
  10. SECUKINUMAB [Suspect]
     Active Substance: SECUKINUMAB
     Dosage: 98 MG ,(DOSAGE TEXT: 98 MG)
     Route: 065
  11. SECUKINUMAB [Suspect]
     Active Substance: SECUKINUMAB
     Dosage: 98 MG
     Route: 065
  12. SECUKINUMAB [Suspect]
     Active Substance: SECUKINUMAB
     Dosage: UNK
     Route: 058
  13. SECUKINUMAB [Suspect]
     Active Substance: SECUKINUMAB
     Dosage: UNK
     Route: 058
  14. SECUKINUMAB [Suspect]
     Active Substance: SECUKINUMAB
     Dosage: UNK
     Route: 058
  15. SECUKINUMAB [Suspect]
     Active Substance: SECUKINUMAB
     Dosage: 98 MG
     Route: 065
  16. SECUKINUMAB [Suspect]
     Active Substance: SECUKINUMAB
     Dosage: UNK
     Route: 058
  17. SECUKINUMAB [Suspect]
     Active Substance: SECUKINUMAB
     Dosage: 98 MG, (ADDITIONAL INFO: ROUTE)
     Route: 065
  18. SECUKINUMAB [Suspect]
     Active Substance: SECUKINUMAB
     Dosage: 98 MG
     Route: 065
  19. SECUKINUMAB [Suspect]
     Active Substance: SECUKINUMAB
     Dosage: UNK
     Route: 065
  20. SECUKINUMAB [Suspect]
     Active Substance: SECUKINUMAB
     Dosage: UNK
     Route: 065
  21. SECUKINUMAB [Suspect]
     Active Substance: SECUKINUMAB
     Dosage: UNK, ADDITIONAL INFORMATION ON DRUG (FREE TEXT): ADDITIONAL INFO: ROUTE:UNKNOWN; UNK
     Route: 065
  22. SECUKINUMAB [Suspect]
     Active Substance: SECUKINUMAB
     Dosage: 98 MG, (DOSAGE TEXT: 98 MG)
     Route: 058
  23. SECUKINUMAB [Suspect]
     Active Substance: SECUKINUMAB
     Dosage: UNK
     Route: 058
  24. SECUKINUMAB [Suspect]
     Active Substance: SECUKINUMAB
     Dosage: UNK
     Route: 065
  25. SECUKINUMAB [Suspect]
     Active Substance: SECUKINUMAB
     Dosage: UNK
     Route: 058
  26. SECUKINUMAB [Suspect]
     Active Substance: SECUKINUMAB
     Dosage: UNK
     Route: 058
  27. SECUKINUMAB [Suspect]
     Active Substance: SECUKINUMAB
     Dosage: UNK
     Route: 065
  28. SECUKINUMAB [Suspect]
     Active Substance: SECUKINUMAB
     Dosage: UNK
     Route: 058
  29. SECUKINUMAB [Suspect]
     Active Substance: SECUKINUMAB
     Dosage: UNK
     Route: 058
  30. SECUKINUMAB [Suspect]
     Active Substance: SECUKINUMAB
     Dosage: UNK
     Route: 058
  31. SECUKINUMAB [Suspect]
     Active Substance: SECUKINUMAB
     Dosage: UNK
     Route: 058
  32. SECUKINUMAB [Suspect]
     Active Substance: SECUKINUMAB
     Dosage: UNK
     Route: 058
  33. SECUKINUMAB [Suspect]
     Active Substance: SECUKINUMAB
     Dosage: UNK
     Route: 058
  34. SECUKINUMAB [Suspect]
     Active Substance: SECUKINUMAB
     Dosage: UNK
     Route: 058
  35. SECUKINUMAB [Suspect]
     Active Substance: SECUKINUMAB
     Dosage: UNK
     Route: 058
  36. SECUKINUMAB [Suspect]
     Active Substance: SECUKINUMAB
     Dosage: UNK
     Route: 058
  37. SECUKINUMAB [Suspect]
     Active Substance: SECUKINUMAB
     Dosage: UNK
     Route: 065
  38. SECUKINUMAB [Suspect]
     Active Substance: SECUKINUMAB
     Dosage: UNK
     Route: 065
  39. SECUKINUMAB [Suspect]
     Active Substance: SECUKINUMAB
     Dosage: 98 MG, (DOSAGE TEXT: 98 MILLIGRAM)
     Route: 058
  40. SECUKINUMAB [Suspect]
     Active Substance: SECUKINUMAB
     Dosage: 90 MG
     Route: 065
  41. SECUKINUMAB [Suspect]
     Active Substance: SECUKINUMAB
     Dosage: 90 MG
     Route: 065
  42. SECUKINUMAB [Suspect]
     Active Substance: SECUKINUMAB
     Dosage: UNK
     Route: 065
  43. SECUKINUMAB [Suspect]
     Active Substance: SECUKINUMAB
     Dosage: UNK
     Route: 065
  44. SECUKINUMAB [Suspect]
     Active Substance: SECUKINUMAB
     Dosage: UNK
     Route: 065
  45. SECUKINUMAB [Suspect]
     Active Substance: SECUKINUMAB
     Dosage: UNK
     Route: 065
  46. SECUKINUMAB [Suspect]
     Active Substance: SECUKINUMAB
     Dosage: UNK
     Route: 065
  47. SECUKINUMAB [Suspect]
     Active Substance: SECUKINUMAB
     Dosage: UNK
     Route: 065
  48. SECUKINUMAB [Suspect]
     Active Substance: SECUKINUMAB
     Dosage: UNK
     Route: 065
  49. SECUKINUMAB [Suspect]
     Active Substance: SECUKINUMAB
     Dosage: 98 MG, (DOSAGE TEXT: UNK,(ADDITIONAL INFORMATION ON DRUG (FREE TEXT): ADDITIONAL INFO: ROUTE:UNKNOWN
     Route: 065
  50. SECUKINUMAB [Suspect]
     Active Substance: SECUKINUMAB
     Dosage: 98 MG, (ADDITIONAL INFO: ROUTE)
     Route: 058
  51. LETROZOLE [Suspect]
     Active Substance: LETROZOLE
     Indication: Breast cancer
     Dosage: 2.5 MG, QD
     Route: 048
     Dates: start: 20240221, end: 20240430
  52. LETROZOLE [Suspect]
     Active Substance: LETROZOLE
     Indication: Breast cancer female
  53. PALBOCICLIB [Suspect]
     Active Substance: PALBOCICLIB
     Indication: Breast cancer
     Dosage: 125 MG, CYCLICAL, (DAILY FROM DAY 1 TO DAY 21 EVERY 28-DAY CYCLE)/ (DOSAGE1: UNIT=NOT AVAILABLE) )
     Route: 048
     Dates: start: 20240221, end: 20240423
  54. PALBOCICLIB [Suspect]
     Active Substance: PALBOCICLIB
     Indication: Breast cancer female
  55. ADALIMUMAB [Suspect]
     Active Substance: ADALIMUMAB
     Indication: Product used for unknown indication
     Dosage: 98 MG
     Route: 058
  56. ADALIMUMAB [Suspect]
     Active Substance: ADALIMUMAB
     Dosage: UNK, (DOSAGE4: UNIT=SURECLICK)/ (CUMULATIVE DOSE TO FIRST REACTION: 98 MG)/UNK, UNK (DOSAGE 4)/DOSAG
     Route: 058
  57. ADALIMUMAB [Suspect]
     Active Substance: ADALIMUMAB
     Dosage: 98 MG, (DOSAGE3: UNIT=SURECLICK)/(CUMULATIVE DOSE TO FIRST REACTION: 98 MG)/UNK (DOSAGE 3) /DOSAGE3:
     Route: 058
  58. ADALIMUMAB [Suspect]
     Active Substance: ADALIMUMAB
     Dosage: 98 MG, (DOSAGE 2: UNIT=SURECLICK)
     Route: 058
  59. ADALIMUMAB [Suspect]
     Active Substance: ADALIMUMAB
     Dosage: 98 MG, (98 MILLIGRAM, UNK (DOSAGE 1: UNIT=NOT AVAILABLE))
     Route: 058
  60. ADALIMUMAB [Suspect]
     Active Substance: ADALIMUMAB
     Dosage: 98 MG, (DOSAGE6: UNIT=SURECLICK) / 98 MG / UNK (DOSAGE1: UNIT=NOT AVAILABLE;) / 98 MILLIGRAMS
     Route: 058
  61. ADALIMUMAB [Suspect]
     Active Substance: ADALIMUMAB
     Dosage: 98 MG, (DOSAGE 2: UNIT=SURECLICK)
     Route: 058
  62. ADALIMUMAB [Suspect]
     Active Substance: ADALIMUMAB
     Dosage: UNK, (DOSAGE1: UNIT=NOT AVAILABLE;)/DOSAGE1: UNIT=SURECLICK
     Route: 058
  63. ADALIMUMAB [Suspect]
     Active Substance: ADALIMUMAB
     Dosage: UNK, (DOSAGE1: UNIT=NOT AVAILABLE;) / UNK (DOSAGE TEXT: UNK 9 DOSAGE 1)
     Route: 065
  64. ADALIMUMAB [Suspect]
     Active Substance: ADALIMUMAB
     Dosage: 98 MG, / 98 MG / DOSAGE1: UNIT=SURECLICK DOSAGE2: UNIT=SURECLICK DOSAGE3: UNIT=SURECLICK DOSAGE4: UN
     Route: 058
  65. ADALIMUMAB [Suspect]
     Active Substance: ADALIMUMAB
     Dosage: UNK
     Route: 058
  66. ADALIMUMAB [Suspect]
     Active Substance: ADALIMUMAB
     Dosage: UNK, DOSAGE 1
     Route: 058
  67. ADALIMUMAB [Suspect]
     Active Substance: ADALIMUMAB
     Dosage: UNK, DOSAGE 2
     Route: 058
  68. ADALIMUMAB [Suspect]
     Active Substance: ADALIMUMAB
     Dosage: UNK, DOSAGE 3
     Route: 058
  69. ADALIMUMAB [Suspect]
     Active Substance: ADALIMUMAB
     Dosage: UNK, DOSAGE 4
     Route: 058
  70. ADALIMUMAB [Suspect]
     Active Substance: ADALIMUMAB
     Dosage: UNK, DOSAGE 9
     Route: 058
  71. ADALIMUMAB [Suspect]
     Active Substance: ADALIMUMAB
     Dosage: UNK, (DOSAGE TEXT: UNK 9 DOSAGE 1)/ UNK 9 (DOSAGE 1: UNIT=SURECLICK)/ (CUMULATIVE DOSE TO FIRST REAC
     Route: 065
  72. ADALIMUMAB [Suspect]
     Active Substance: ADALIMUMAB
     Dosage: UNK, (9, DOSAGE 1: UNIT=SURECLICK)
     Route: 058
  73. ADALIMUMAB [Suspect]
     Active Substance: ADALIMUMAB
     Dosage: UNK, (DOSAGE 3: UNIT=SURECLICK)
     Route: 058
  74. ADALIMUMAB [Suspect]
     Active Substance: ADALIMUMAB
     Dosage: UNK, (DOSAGE 1: UNIT=NOT AVAILABLE))
     Route: 058
  75. ADALIMUMAB [Suspect]
     Active Substance: ADALIMUMAB
     Dosage: 98 MG, (DOSAGE TEXT: UNK 9 DOSAGE 1)
     Route: 058
  76. ADALIMUMAB [Suspect]
     Active Substance: ADALIMUMAB
     Dosage: UNK, (UNK, DOSAGE 1)
     Route: 058
  77. ADALIMUMAB [Suspect]
     Active Substance: ADALIMUMAB
     Dosage: UNK, (UNK, DOSAGE 1)
     Route: 058
  78. ADALIMUMAB [Suspect]
     Active Substance: ADALIMUMAB
     Dosage: UNK, (UNK, DOSAGE 2)
     Route: 058
  79. ADALIMUMAB [Suspect]
     Active Substance: ADALIMUMAB
     Dosage: UNK, (UNK, DOSAGE 3)
     Route: 058
  80. ADALIMUMAB [Suspect]
     Active Substance: ADALIMUMAB
     Dosage: 98 MG, 9 (DOSAGE 1: UNIT=SURECLICK)
     Route: 058
  81. ADALIMUMAB [Suspect]
     Active Substance: ADALIMUMAB
     Dosage: UNK,  (UNK, DOSAGE 1)
     Route: 058
  82. ADALIMUMAB [Suspect]
     Active Substance: ADALIMUMAB
     Dosage: 98 MG, (DOSAGE 2: UNIT=SURECLICK)
     Route: 058
  83. ADALIMUMAB [Suspect]
     Active Substance: ADALIMUMAB
     Dosage: 98 MG, DOSAGE 1: UNIT=NOT AVAILABLE
     Route: 058
  84. ADALIMUMAB [Suspect]
     Active Substance: ADALIMUMAB
     Dosage: 98 MG, UNK (DOSAGE TEXT: UNK 9 DOSAGE 1))
     Route: 058
  85. ADALIMUMAB [Suspect]
     Active Substance: ADALIMUMAB
     Dosage: UNK, (UNK, DOSAGE 2)
     Route: 065
  86. ADALIMUMAB [Suspect]
     Active Substance: ADALIMUMAB
     Dosage: 98 MG, DOSAGE 3
     Route: 058
  87. ADALIMUMAB [Suspect]
     Active Substance: ADALIMUMAB
     Dosage: 98 MG, DOSAGE 4
     Route: 058
  88. ADALIMUMAB [Suspect]
     Active Substance: ADALIMUMAB
     Dosage: 98 MG
     Route: 058
  89. ADALIMUMAB [Suspect]
     Active Substance: ADALIMUMAB
     Dosage: UNK, (DOSAGE TEXT: UNK 9 DOSAGE 1)/ UNK 9 (DOSAGE 1: UNIT=SURECLICK)
     Route: 058
  90. ADALIMUMAB [Suspect]
     Active Substance: ADALIMUMAB
     Dosage: 98 MG
     Route: 058
  91. ADALIMUMAB [Suspect]
     Active Substance: ADALIMUMAB
     Dosage: 98 MG
     Route: 058
  92. ADALIMUMAB [Suspect]
     Active Substance: ADALIMUMAB
     Dosage: 98 MG
     Route: 058
  93. ADALIMUMAB [Suspect]
     Active Substance: ADALIMUMAB
     Dosage: 98 MG
     Route: 058
  94. ADALIMUMAB [Suspect]
     Active Substance: ADALIMUMAB
     Dosage: 98 MG
     Route: 058
  95. ADALIMUMAB [Suspect]
     Active Substance: ADALIMUMAB
     Dosage: 98 MG, ((DOSAGE TEXT: UNK 9 DOSAGE 1)/ UNK 9 (DOSAGE 1: UNIT=SURECLICK)/ (CUMULATIVE DOSE TO FIRST R
     Route: 058
  96. ADALIMUMAB [Suspect]
     Active Substance: ADALIMUMAB
     Dosage: UNK, (DOSAGE1: UNIT=NOT AVAILABLE;)
     Route: 058
  97. ADALIMUMAB [Suspect]
     Active Substance: ADALIMUMAB
     Dosage: 98 MG
     Route: 058
  98. ADALIMUMAB [Suspect]
     Active Substance: ADALIMUMAB
     Dosage: 98 MG, (UNKUNK 9DOSAGE1: UNIT=SURECLICK)
     Route: 058
  99. ADALIMUMAB [Suspect]
     Active Substance: ADALIMUMAB
     Dosage: 98 MG
     Route: 058
  100. ADALIMUMAB [Suspect]
     Active Substance: ADALIMUMAB
     Dosage: 98 MG, UNK (DOSAGE4: UNIT=SURECLICK)/ (CUMULATIVE DOSE TO FIRST REACTION: 98 MG)/UNK, UNK (DOSAGE 4)
     Route: 058
  101. ADALIMUMAB [Suspect]
     Active Substance: ADALIMUMAB
     Dosage: 98 MG, (98 MG UNK (DOSAGE3: UNIT=SURECLICK)/ (CUMULATIVE DOSE TO FIRST REACTION: 98 MG)/UNK (DOSAGE
     Route: 058
  102. ADALIMUMAB [Suspect]
     Active Substance: ADALIMUMAB
     Dosage: UNK, (DOSAGE TEXT: UNK 9 DOSAGE 1)/ UNK 9 (DOSAGE 1: UNIT=SURECLICK)
     Route: 058
  103. ADALIMUMAB [Suspect]
     Active Substance: ADALIMUMAB
     Dosage: 98 MG, UNK (DOSAGE1: UNIT=SURECLICK) / UNK DOSAGE 1: UNIT=NOT AVAILABLE/ (CUMULATIVE DOSE TO FIRST R
     Route: 058
  104. ADALIMUMAB [Suspect]
     Active Substance: ADALIMUMAB
     Dosage: UNK, DOSAGE 2
     Route: 058
  105. EDOXABAN TOSYLATE [Concomitant]
     Active Substance: EDOXABAN TOSYLATE
     Indication: Product used for unknown indication
     Dosage: UNK
     Route: 048
     Dates: start: 202401
  106. EDOXABAN TOSYLATE [Concomitant]
     Active Substance: EDOXABAN TOSYLATE
     Dosage: UNK
     Route: 065
     Dates: start: 202401, end: 202401
  107. EDOXABAN TOSYLATE [Concomitant]
     Active Substance: EDOXABAN TOSYLATE
     Dosage: UNK
     Route: 065
     Dates: start: 202401, end: 202401
  108. EDOXABAN TOSYLATE [Concomitant]
     Active Substance: EDOXABAN TOSYLATE
     Dosage: UNK
     Route: 048
     Dates: start: 202401

REACTIONS (5)
  - Anaemia [Recovered/Resolved]
  - Systemic lupus erythematosus [Unknown]
  - White blood cell count decreased [Unknown]
  - Neoplasm progression [Unknown]
  - Metastases to bone [Unknown]

NARRATIVE: CASE EVENT DATE: 20240330
